FAERS Safety Report 21162378 (Version 1)
Quarter: 2022Q3

REPORT INFORMATION
  Report Type: Spontaneous
  Country: US (occurrence: US)
  Receive Date: 20220802
  Receipt Date: 20220802
  Transmission Date: 20221026
  Serious: Yes (Other)
  Sender: FDA-Public Use
  Company Number: US-TEVA-2022-US-2057616

PATIENT
  Sex: Female

DRUGS (9)
  1. OXYBUTYNIN [Suspect]
     Active Substance: OXYBUTYNIN
     Indication: Hypertonic bladder
     Dosage: UNK
  2. EPINEPHRINE [Suspect]
     Active Substance: EPINEPHRINE
     Indication: Angioedema
     Dosage: STRENGTH: 0.3/0.3 MG/ML
  3. METOPROLOL SUCCINATE [Suspect]
     Active Substance: METOPROLOL SUCCINATE
     Indication: Blood pressure measurement
     Dosage: UNK
  4. HYDROXYZINE HYDROCHLORIDE [Suspect]
     Active Substance: HYDROXYZINE HYDROCHLORIDE
     Indication: Anxiety
     Dosage: UNK
  5. FAMOTIDINE [Suspect]
     Active Substance: FAMOTIDINE
     Indication: Abdominal discomfort
     Dosage: UNK
  6. MONTELUKAST SODIUM [Suspect]
     Active Substance: MONTELUKAST SODIUM
     Indication: Hypersensitivity
     Dosage: ONLY ON DAY 2 OF TAKING
  7. CETIRIZINE [Concomitant]
     Active Substance: CETIRIZINE HYDROCHLORIDE
  8. FISH OIL [Concomitant]
     Active Substance: FISH OIL
     Indication: Cardiac disorder
  9. VITAMINS NOS [Concomitant]
     Active Substance: VITAMINS

REACTIONS (17)
  - Choking [Unknown]
  - Swollen tongue [Unknown]
  - Urticaria [Unknown]
  - Peripheral swelling [Unknown]
  - Pruritus [Unknown]
  - Fear [Unknown]
  - Poor quality sleep [Unknown]
  - Lip swelling [Unknown]
  - Dysphagia [Unknown]
  - Dyspnoea [Unknown]
  - Limb discomfort [Unknown]
  - Rash [Unknown]
  - Blister [Unknown]
  - Rash macular [Unknown]
  - Pain [Unknown]
  - Feeling hot [Unknown]
  - Panic attack [Unknown]
